FAERS Safety Report 8861141 (Version 1)
Quarter: 2012Q4

REPORT INFORMATION
  Report Type: 
  Country: US (occurrence: US)
  Receive Date: 20121025
  Receipt Date: 20121025
  Transmission Date: 20130627
  Serious: No
  Sender: FDA-Public Use
  Company Number: US-AMGEN-USASP2012012429

PATIENT
  Age: 51 Year
  Sex: Female

DRUGS (1)
  1. ENBREL [Suspect]
     Indication: ANKYLOSING SPONDYLITIS
     Dosage: 50 mg, qwk
     Dates: start: 20031104

REACTIONS (14)
  - Road traffic accident [Recovered/Resolved]
  - Blood pressure increased [Recovered/Resolved]
  - Pain [Recovered/Resolved]
  - Skin burning sensation [Recovered/Resolved]
  - Scab [Not Recovered/Not Resolved]
  - Haemorrhage [Not Recovered/Not Resolved]
  - Erythema [Not Recovered/Not Resolved]
  - Skin exfoliation [Not Recovered/Not Resolved]
  - Night sweats [Not Recovered/Not Resolved]
  - Fatigue [Not Recovered/Not Resolved]
  - Pruritus [Not Recovered/Not Resolved]
  - Rash [Not Recovered/Not Resolved]
  - Injection site bruising [Recovered/Resolved]
  - Injection site urticaria [Recovered/Resolved]
